FAERS Safety Report 5781185-1 (Version None)
Quarter: 2008Q2

REPORT INFORMATION
  Report Type: 
  Country: None (occurrence: None)
  Receive Date: 20080618
  Receipt Date: 20080611
  Transmission Date: 20081010
  Serious: Yes (Other)
  Sender: FDA-Public Use
  Company Number: CIO08010539

PATIENT
  Age: 27 Year
  Sex: Male

DRUGS (4)
  1. PEPTO-BISMOL MAXIMUM STRENGTH, ORIGINAL FLAVOR(BISMUTH SUBSALICYLATE 5 [Suspect]
     Dosage: 30 ML, 1 ONLY FOR 1 DAY, ORAL
     Route: 048
     Dates: start: 20080610, end: 20080610
  2. ^ACETAMINOPHEN PHENYLEPHRINE HC SINUS CAPLETS^() [Suspect]
     Dosage: 1 ONLY FOR 1 DAY, ORAL
     Route: 048
     Dates: start: 20080610, end: 20080610
  3. DOXEPIN HCL [Suspect]
     Dosage: ORAL
     Route: 048
     Dates: start: 20080610, end: 20080610
  4. ALKA SELTZER /00002701/(ACETYLSALICYLIC ACID) [Suspect]
     Dosage: 2 /DAY FOR 1 DAY, ORAL
     Route: 048
     Dates: start: 20080610, end: 20080610

REACTIONS (14)
  - BACK PAIN [None]
  - CONFUSIONAL STATE [None]
  - CONTRAINDICATION TO MEDICAL TREATMENT [None]
  - CONVULSION [None]
  - DRUG ADMINISTRATION ERROR [None]
  - FALL [None]
  - FOAMING AT MOUTH [None]
  - HYPERHIDROSIS [None]
  - MALAISE [None]
  - PAIN IN EXTREMITY [None]
  - PALPITATIONS [None]
  - PRURITUS GENERALISED [None]
  - PSYCHOTIC DISORDER [None]
  - TREMOR [None]
